FAERS Safety Report 6302308-1 (Version None)
Quarter: 2009Q3

REPORT INFORMATION
  Report Type: 
  Country: None (occurrence: None)
  Receive Date: 20090810
  Receipt Date: 20090729
  Transmission Date: 20100115
  Serious: Yes (Hospitalization)
  Sender: FDA-Public Use
  Company Number: FR-PFIZER INC-2009247271

PATIENT
  Age: 22 Year

DRUGS (16)
  1. TRIFLUCAN [Suspect]
     Dosage: 400 MG, 1X/DAY
     Route: 042
     Dates: start: 20081001, end: 20081005
  2. KIDROLASE [Suspect]
     Dosage: 9000 IU, ON 18SEP, 20SEP, 22 SEP, 30 SEP AND 02OCT
     Route: 042
     Dates: start: 20080918, end: 20081002
  3. GLEEVEC [Suspect]
     Dosage: 400 MG, 1X/DAY
     Route: 048
     Dates: start: 20081003, end: 20081008
  4. FLAGYL [Suspect]
     Dosage: 500 MG, 3X/DAY
     Route: 048
     Dates: start: 20080921, end: 20081005
  5. TAZOCILLINE [Suspect]
     Dosage: 4 G, 3X/DAY
     Route: 042
     Dates: start: 20080912, end: 20081007
  6. ACUPAN [Suspect]
     Dosage: UNK
     Route: 042
     Dates: start: 20081002, end: 20081008
  7. ACLOTINE [Suspect]
     Dosage: UNK
     Route: 042
     Dates: start: 20080930, end: 20081007
  8. XANAX [Concomitant]
  9. GRANOCYTE [Concomitant]
  10. VOGALENE [Concomitant]
  11. TRANXENE [Concomitant]
  12. TOPALGIC [Concomitant]
  13. CIFLOX [Concomitant]
  14. ZOPHREN [Concomitant]
     Route: 042
  15. MORPHINE HYDROCHLORIDE ^AGUETTANT^ [Concomitant]
  16. ATARAX [Concomitant]

REACTIONS (2)
  - CHOLESTASIS [None]
  - PANCREATITIS ACUTE [None]
